FAERS Safety Report 25240534 (Version 6)
Quarter: 2025Q4

REPORT INFORMATION
  Report Type: Report from Study
  Country: US (occurrence: US)
  Receive Date: 20250425
  Receipt Date: 20251216
  Transmission Date: 20260118
  Serious: Yes (Hospitalization)
  Sender: TRAVERE THERAPEUTICS
  Company Number: US-TRAVERE-2025TVT00479

PATIENT
  Age: 72 Year
  Sex: Male
  Weight: 88 kg

DRUGS (34)
  1. FILSPARI [Suspect]
     Active Substance: SPARSENTAN
     Indication: IgA nephropathy
     Route: 048
     Dates: start: 20250102, end: 20250116
  2. FILSPARI [Suspect]
     Active Substance: SPARSENTAN
     Route: 048
     Dates: start: 20250117, end: 202504
  3. AMLODIPINE [Concomitant]
     Active Substance: AMLODIPINE BESYLATE
  4. ASCORBIC ACID [Concomitant]
     Active Substance: ASCORBIC ACID
  5. ASPIRIN [Concomitant]
     Active Substance: ASPIRIN
  6. ATORVASTATIN [Concomitant]
     Active Substance: ATORVASTATIN
  7. ATOVAQUONE\PROGUANIL HYDROCHLORIDE [Concomitant]
     Active Substance: ATOVAQUONE\PROGUANIL HYDROCHLORIDE
  8. BIOTIN [Concomitant]
     Active Substance: BIOTIN
  9. OSCAL [Concomitant]
     Active Substance: CALCIUM CARBONATE
  10. CALCIUM CARBONATE [Concomitant]
     Active Substance: CALCIUM CARBONATE
  11. CHOLECALCIFEROL [Concomitant]
     Active Substance: CHOLECALCIFEROL
  12. CLOPIDOGREL [Concomitant]
     Active Substance: CLOPIDOGREL BISULFATE
  13. EZETIMIBE [Concomitant]
     Active Substance: EZETIMIBE
  14. FAMOTIDINE [Concomitant]
     Active Substance: FAMOTIDINE
  15. FIASP [Concomitant]
     Active Substance: INSULIN ASPART
  16. FLUCONAZOLE [Concomitant]
     Active Substance: FLUCONAZOLE
  17. FOLIC ACID [Concomitant]
     Active Substance: FOLIC ACID
  18. LAGEVRIO [Concomitant]
     Active Substance: MOLNUPIRAVIR
  19. LANTUS [Concomitant]
     Active Substance: INSULIN GLARGINE
  20. LEVOTHYROXINE [Concomitant]
     Active Substance: LEVOTHYROXINE
  21. METOPROLOL TARTRATE [Concomitant]
     Active Substance: METOPROLOL TARTRATE
  22. METOPROLOL [Concomitant]
     Active Substance: METOPROLOL
  23. multivitamins capsule [Concomitant]
  24. MYCOPHENOLATE MOFETIL [Concomitant]
     Active Substance: MYCOPHENOLATE MOFETIL
  25. NITROGLYCERIN [Concomitant]
     Active Substance: NITROGLYCERIN
  26. OZEMPIC [Concomitant]
     Active Substance: SEMAGLUTIDE
  27. PANTOPRAZOLE [Concomitant]
     Active Substance: PANTOPRAZOLE
  28. RIVAROXABAN [Concomitant]
     Active Substance: RIVAROXABAN
  29. SELENIUM [Concomitant]
     Active Substance: SELENIUM
  30. TACROLIMUS [Concomitant]
     Active Substance: TACROLIMUS
  31. TAMSULOSIN [Concomitant]
     Active Substance: TAMSULOSIN
  32. VASCEPA [Concomitant]
     Active Substance: ICOSAPENT ETHYL
  33. VITAMIN E [Concomitant]
     Active Substance: .ALPHA.-TOCOPHEROL
  34. CANNABIS SATIVA SUBSP. INDICA TOP [Concomitant]
     Active Substance: CANNABIS SATIVA SUBSP. INDICA TOP

REACTIONS (19)
  - Hypervolaemia [Unknown]
  - Hypertension [Unknown]
  - Dyspnoea [Unknown]
  - Acute kidney injury [Unknown]
  - Nausea [None]
  - Oedema [Unknown]
  - Drug ineffective [Unknown]
  - Cough [Unknown]
  - Blood creatinine increased [Unknown]
  - Asthenia [Unknown]
  - Fatigue [Unknown]
  - Decreased appetite [Unknown]
  - Chapped lips [Unknown]
  - Thirst [Unknown]
  - Renal function test abnormal [Unknown]
  - Liver function test abnormal [Unknown]
  - Haematology test abnormal [Unknown]
  - Blood glucose increased [Unknown]
  - Weight decreased [Unknown]

NARRATIVE: CASE EVENT DATE: 20250320
